FAERS Safety Report 22372378 (Version 6)
Quarter: 2024Q1

REPORT INFORMATION
  Report Type: Report from Study
  Country: US (occurrence: US)
  Receive Date: 20230526
  Receipt Date: 20240214
  Transmission Date: 20240410
  Serious: No
  Sender: FDA-Public Use
  Company Number: US-002147023-NVSC2023US115555

PATIENT
  Sex: Female

DRUGS (1)
  1. KESIMPTA [Suspect]
     Active Substance: OFATUMUMAB
     Indication: Relapsing multiple sclerosis
     Dosage: UNK
     Route: 065
     Dates: start: 20230504

REACTIONS (9)
  - Influenza like illness [Recovering/Resolving]
  - Pain [Unknown]
  - Fatigue [Recovering/Resolving]
  - Insomnia [Recovering/Resolving]
  - Feeling abnormal [Unknown]
  - COVID-19 [Unknown]
  - Headache [Unknown]
  - Respiratory disorder [Unknown]
  - Sinus disorder [Unknown]
